FAERS Safety Report 4967312-4 (Version None)
Quarter: 2006Q2

REPORT INFORMATION
  Report Type: 
  Country: None (occurrence: None)
  Receive Date: 20060410
  Receipt Date: 20060329
  Transmission Date: 20061013
  Serious: Yes (Hospitalization)
  Sender: FDA-Public Use
  Company Number: GB-ABBOTT-06P-167-0329253-00

PATIENT
  Age: 80 Year
  Sex: Male

DRUGS (3)
  1. HELICLEAR [Suspect]
     Indication: HELICOBACTER INFECTION
     Route: 048
     Dates: end: 20060101
  2. LANSOPRAZOLE [Suspect]
     Indication: HELICOBACTER INFECTION
     Route: 048
     Dates: end: 20060101
  3. AMOXICILLIN [Suspect]
     Indication: HELICOBACTER INFECTION
     Route: 048
     Dates: end: 20060101

REACTIONS (2)
  - MOUTH ULCERATION [None]
  - PHARYNGEAL ULCERATION [None]
